FAERS Safety Report 9273138 (Version 2)
Quarter: 2013Q4

REPORT INFORMATION
  Report Type: Spontaneous
  Country: IT (occurrence: IT)
  Receive Date: 20130506
  Receipt Date: 20131206
  Transmission Date: 20140711
  Serious: Yes (Hospitalization)
  Sender: FDA-Public Use
  Company Number: PHHY2013IT043634

PATIENT
  Sex: Female

DRUGS (1)
  1. TRAMADOL [Suspect]
     Dosage: 225 MG TOTAL
     Route: 048
     Dates: start: 20130413, end: 20130413

REACTIONS (7)
  - Accidental exposure to product by child [Recovered/Resolved]
  - Drug abuse [Recovered/Resolved]
  - Miosis [Recovered/Resolved]
  - Unresponsive to stimuli [Recovered/Resolved]
  - Bradypnoea [Recovered/Resolved]
  - Eye movement disorder [Recovered/Resolved]
  - Loss of consciousness [Recovered/Resolved]
